FAERS Safety Report 16643622 (Version 5)
Quarter: 2021Q3

REPORT INFORMATION
  Report Type: Spontaneous
  Country: US (occurrence: US)
  Receive Date: 20190729
  Receipt Date: 20210825
  Transmission Date: 20211014
  Serious: Yes (Other)
  Sender: FDA-Public Use
  Company Number: US-PFIZER INC-2019323358

PATIENT
  Age: 66 Year
  Sex: Female
  Weight: 101.15 kg

DRUGS (5)
  1. PREGABALIN. [Suspect]
     Active Substance: PREGABALIN
     Indication: MYOFASCIAL PAIN SYNDROME
     Dosage: 400 MG, UNK
  2. PREGABALIN. [Suspect]
     Active Substance: PREGABALIN
     Dosage: 1 DF, 2X/DAY (1 PILL TWICE A DAY)
  3. ALPRAZOLAM. [Concomitant]
     Active Substance: ALPRAZOLAM
     Dosage: 0.05 MG, UNK
  4. SERTRALINE [Concomitant]
     Active Substance: SERTRALINE HYDROCHLORIDE
     Dosage: 50 MG, UNK
  5. PREGABALIN. [Suspect]
     Active Substance: PREGABALIN
     Dosage: 100 MG, 1X/DAY
     Dates: start: 201907, end: 2019

REACTIONS (10)
  - Drug ineffective for unapproved indication [Recovered/Resolved]
  - Insomnia [Recovered/Resolved]
  - Feeling abnormal [Unknown]
  - Abnormal behaviour [Unknown]
  - Off label use [Recovered/Resolved]
  - Abnormal dreams [Unknown]
  - Somnambulism [Unknown]
  - Intentional product use issue [Unknown]
  - Hallucination [Unknown]
  - Drug intolerance [Unknown]
